FAERS Safety Report 4544269-1 (Version None)
Quarter: 2004Q4

REPORT INFORMATION
  Report Type: 
  Country: None (occurrence: None)
  Receive Date: 20041230
  Receipt Date: 20041220
  Transmission Date: 20050328
  Serious: Yes (Disabling)
  Sender: FDA-Public Use
  Company Number: 2004PK01136

PATIENT
  Age: 77 Year
  Sex: Male
  Weight: 70 kg

DRUGS (3)
  1. IRESSA [Suspect]
     Indication: NON-SMALL CELL LUNG CANCER
     Dosage: 250 MG DAILY PO
     Route: 048
     Dates: start: 20040210, end: 20040413
  2. ACETYLSALICYLIC ACID SRT [Concomitant]
  3. PANCREATIC ENZYMES [Concomitant]

REACTIONS (2)
  - DISEASE PROGRESSION [None]
  - OEDEMA GENITAL [None]
